FAERS Safety Report 22353099 (Version 1)
Quarter: 2023Q2

REPORT INFORMATION
  Report Type: Spontaneous
  Country: US (occurrence: US)
  Receive Date: 20230523
  Receipt Date: 20230523
  Transmission Date: 20230722
  Serious: No
  Sender: FDA-Public Use
  Company Number: US-GE HEALTHCARE-2023CSU001731

PATIENT
  Age: 84 Year
  Sex: Male
  Weight: 97.506 kg

DRUGS (2)
  1. OMNIPAQUE [Suspect]
     Active Substance: IOHEXOL
     Indication: Computerised tomogram
     Dosage: 150 ML, IN ARM, ONCE
     Route: 042
     Dates: start: 20230311, end: 20230311
  2. OMNIPAQUE [Suspect]
     Active Substance: IOHEXOL
     Indication: Injury

REACTIONS (1)
  - Urticaria [Recovered/Resolved]

NARRATIVE: CASE EVENT DATE: 20230311
